FAERS Safety Report 6884980-0 (Version None)
Quarter: 2010Q3

REPORT INFORMATION
  Report Type: 
  Country: None (occurrence: None)
  Receive Date: 20100729
  Receipt Date: 20071025
  Transmission Date: 20110219
  Serious: No
  Sender: FDA-Public Use
  Company Number: US-PFIZER INC-2007090221

PATIENT
  Sex: Female

DRUGS (5)
  1. CELEBREX [Suspect]
     Dates: start: 20071024, end: 20071025
  2. LIPITOR [Concomitant]
  3. BENICAR [Concomitant]
  4. LEVOTHYROXINE SODIUM [Concomitant]
  5. PREVACID [Concomitant]

REACTIONS (1)
  - PRURITUS [None]
